FAERS Safety Report 19950912 (Version 3)
Quarter: 2023Q1

REPORT INFORMATION
  Report Type: Spontaneous
  Country: US (occurrence: US)
  Receive Date: 20211013
  Receipt Date: 20230124
  Transmission Date: 20230418
  Serious: No
  Sender: FDA-Public Use
  Company Number: US-PFIZER INC-202101017148

PATIENT
  Age: 71 Year
  Sex: Female

DRUGS (1)
  1. IBRANCE [Suspect]
     Active Substance: PALBOCICLIB
     Indication: Breast cancer
     Dosage: 125 MG, CYCLIC, (1-21DAYS THEN 7DAYS OFF)
     Dates: start: 20210420

REACTIONS (4)
  - Alopecia [Unknown]
  - Onycholysis [Unknown]
  - Nail discolouration [Unknown]
  - Onychalgia [Unknown]
